FAERS Safety Report 9478447 (Version 1)
Quarter: 2013Q3

REPORT INFORMATION
  Report Type: Spontaneous
  Country: US (occurrence: US)
  Receive Date: 20130827
  Receipt Date: 20130827
  Transmission Date: 20140515
  Serious: Yes (Hospitalization)
  Sender: FDA-Public Use
  Company Number: US-ELI_LILLY_AND_COMPANY-US201308005339

PATIENT
  Age: 44 Year
  Sex: Female

DRUGS (6)
  1. ZYPREXA RELPREVV [Suspect]
     Indication: BIPOLAR DISORDER
     Dosage: 150 MG, UNKNOWN
     Route: 030
     Dates: start: 201208
  2. ZYPREXA RELPREVV [Suspect]
     Dosage: 405 MG, UNKNOWN
     Route: 030
  3. CRESTOR [Concomitant]
     Dosage: 10 MG, UNKNOWN
     Route: 065
  4. LEVOTHYROXINE [Concomitant]
     Dosage: 88 UG, UNKNOWN
     Route: 065
  5. CITALOPRAM [Concomitant]
     Dosage: 10 MG, UNKNOWN
     Route: 065
  6. LORAZEPAM [Concomitant]
     Dosage: 0.5 MG, UNKNOWN
     Route: 065

REACTIONS (4)
  - Aphasia [Recovered/Resolved]
  - Sedation [Recovered/Resolved]
  - Loss of consciousness [Recovered/Resolved]
  - Dysarthria [Recovered/Resolved]
